FAERS Safety Report 14454461 (Version 2)
Quarter: 2018Q1

REPORT INFORMATION
  Report Type: Report from Study
  Country: JP (occurrence: JP)
  Receive Date: 20180129
  Receipt Date: 20180307
  Transmission Date: 20180509
  Serious: Yes (Hospitalization)
  Sender: FDA-Public Use
  Company Number: JP-DSJP-DSJ-2018-102967

PATIENT

DRUGS (28)
  1. MAINTATE [Concomitant]
     Active Substance: BISOPROLOL FUMARATE
     Dosage: 1.25MG/DAY
     Route: 048
     Dates: start: 20151107, end: 20160201
  2. QVAR [Concomitant]
     Active Substance: BECLOMETHASONE DIPROPIONATE
     Dosage: 2DF/DAY
     Route: 055
     Dates: start: 20160201
  3. DEXAMETHASONE. [Concomitant]
     Active Substance: DEXAMETHASONE
     Dosage: 1 UNK, QD
     Route: 050
     Dates: start: 20171030
  4. SPIRONOLACTONE. [Concomitant]
     Active Substance: SPIRONOLACTONE
     Dosage: 12.5MG/DAY
     Route: 048
     Dates: start: 20161213, end: 20170818
  5. TAKECAB [Concomitant]
     Active Substance: VONOPRAZAN FUMURATE
     Dosage: 10MG/DAY
     Route: 048
     Dates: start: 20170425, end: 20170509
  6. EDOXABAN [Suspect]
     Active Substance: EDOXABAN TOSYLATE
     Indication: ATRIAL FIBRILLATION
     Dosage: 60 MG, QD
     Route: 048
     Dates: start: 20151030
  7. MAINTATE [Concomitant]
     Active Substance: BISOPROLOL FUMARATE
     Dosage: 0.625MG/DAY
     Route: 048
     Dates: start: 20151029, end: 20151106
  8. FUROSEMIDE. [Concomitant]
     Active Substance: FUROSEMIDE
     Dosage: 10MG/DAY
     Route: 048
     Dates: start: 20151113, end: 20160831
  9. PULMICORT TURBUHALER [Concomitant]
     Active Substance: BUDESONIDE
     Dosage: 4DF/DAY
     Route: 055
     Dates: end: 20160131
  10. FEXOFENADINE [Concomitant]
     Active Substance: FEXOFENADINE\FEXOFENADINE HYDROCHLORIDE
     Dosage: 120MG/DAY
     Route: 048
     Dates: start: 20170912, end: 20171011
  11. ENALAPRIL MALEATE. [Concomitant]
     Active Substance: ENALAPRIL MALEATE
     Dosage: 5MG/DAY
     Route: 048
     Dates: start: 20170912
  12. LEVOFLOXACIN. [Concomitant]
     Active Substance: LEVOFLOXACIN
     Dosage: 1 UNK, BID
     Route: 047
     Dates: start: 20170123, end: 20170220
  13. LYRICA [Concomitant]
     Active Substance: PREGABALIN
     Dosage: 50MG/DAY
     Route: 048
     Dates: start: 20170201, end: 20170328
  14. MAINTATE [Concomitant]
     Active Substance: BISOPROLOL FUMARATE
     Dosage: 2.5MG/DAY
     Route: 048
     Dates: start: 20160202
  15. CONIEL [Concomitant]
     Active Substance: BENIDIPINE HYDROCHLORIDE
     Dosage: 4MG/DAY
     Route: 048
     Dates: start: 20151029, end: 20170206
  16. NICORANDIL [Concomitant]
     Active Substance: NICORANDIL
     Dosage: 10MG/DAY
     Route: 048
     Dates: end: 20151102
  17. FUROSEMIDE. [Concomitant]
     Active Substance: FUROSEMIDE
     Dosage: 20MG/DAY
     Route: 048
     Dates: start: 20151103, end: 20151112
  18. NITROPEN [Concomitant]
     Active Substance: NITROGLYCERIN
     Dosage: 0.3MG/DAY, AS NEEDED (AT THE TIME OF ATTACK)
     Route: 048
     Dates: start: 20151107
  19. BENIDIPINE [Concomitant]
     Active Substance: BENIDIPINE
     Dosage: 2MG/DAY
     Route: 048
     Dates: start: 20170207
  20. FEBURIC [Concomitant]
     Active Substance: FEBUXOSTAT
     Dosage: 10MG/DAY
     Route: 048
     Dates: start: 20170912
  21. ZETIA [Concomitant]
     Active Substance: EZETIMIBE
     Dosage: 10MG/DAY
     Route: 048
     Dates: start: 20160329
  22. LYRICA [Concomitant]
     Active Substance: PREGABALIN
     Dosage: 25MG/DAY
     Route: 048
     Dates: start: 20170113, end: 20170131
  23. CELECOX [Concomitant]
     Active Substance: CELECOXIB
     Dosage: 200MG/DAY
     Route: 048
     Dates: start: 20170425, end: 20170509
  24. NICORANDIL [Concomitant]
     Active Substance: NICORANDIL
     Dosage: 7.5MG/DAY
     Route: 048
     Dates: start: 20151105, end: 20160831
  25. FUROSEMIDE. [Concomitant]
     Active Substance: FUROSEMIDE
     Dosage: 20MG/DAY
     Route: 048
     Dates: start: 20160901
  26. SIGMART [Concomitant]
     Active Substance: NICORANDIL
     Dosage: 7.5MG/DAY
     Route: 048
     Dates: start: 20160901
  27. RENIVACE [Concomitant]
     Active Substance: ENALAPRIL
     Dosage: 2.5MG/DAY
     Route: 048
     Dates: start: 20161213, end: 20170911
  28. DILTIAZEM HYDROCHLORIDE R [Concomitant]
     Active Substance: DILTIAZEM HYDROCHLORIDE
     Dosage: 100MG/DAY
     Route: 048
     Dates: start: 20160901

REACTIONS (2)
  - Colon adenoma [Recovered/Resolved]
  - Haematuria [Recovering/Resolving]

NARRATIVE: CASE EVENT DATE: 20161111
